FAERS Safety Report 10616121 (Version 1)
Quarter: 2014Q4

REPORT INFORMATION
  Report Type: Spontaneous
  Country: US (occurrence: None)
  Receive Date: 20141126
  Receipt Date: 20141126
  Transmission Date: 20150529
  Serious: No
  Sender: FDA-Public Use
  Company Number: None

PATIENT

DRUGS (2)
  1. PRIVIGEN [Suspect]
     Active Substance: HUMAN IMMUNOGLOBULIN G
  2. ALBUMIN [Suspect]
     Active Substance: ALBUMIN (HUMAN)

REACTIONS (2)
  - Product packaging confusion [None]
  - Product label confusion [None]

NARRATIVE: CASE EVENT DATE: 20141103
